FAERS Safety Report 7230204-4 (Version None)
Quarter: 2011Q1

REPORT INFORMATION
  Report Type: 
  Country: None (occurrence: None)
  Receive Date: 20110118
  Receipt Date: 20110113
  Transmission Date: 20110831
  Serious: Yes (Hospitalization, Other)
  Sender: FDA-Public Use
  Company Number: US-ASTRAZENECA-2007UW18509

PATIENT
  Age: 13946 Day
  Sex: Female
  Weight: 103.9 kg

DRUGS (22)
  1. SEROQUEL [Suspect]
     Indication: DEPRESSION
     Route: 048
     Dates: start: 20030401, end: 20070711
  2. SEROQUEL [Suspect]
     Dosage: 100 MG, 200 MG DISPENSED
     Route: 048
     Dates: start: 20040524
  3. SEROQUEL [Suspect]
     Route: 048
     Dates: start: 20051202
  4. SEROQUEL [Suspect]
     Dosage: 50 MG TO 300 MG
     Route: 048
     Dates: start: 20040330
  5. LEXAPRO [Concomitant]
     Dosage: 20 MG TO 30 MG
     Dates: start: 20040330
  6. LEXAPRO [Concomitant]
     Dates: start: 20040707
  7. NORVASC [Concomitant]
     Route: 048
     Dates: start: 20030919
  8. ENALAPRIL [Concomitant]
     Dates: start: 20010729
  9. METFORMIN [Concomitant]
     Dates: start: 20040330
  10. LIPITOR [Concomitant]
     Dates: start: 20010729
  11. ABILIFY [Concomitant]
     Dosage: TOTAL DAILY DOSE 20 MG
     Dates: start: 20070601
  12. SEROQUEL [Suspect]
     Dosage: 50 MG TO 300 MG
     Route: 048
     Dates: start: 20040330
  13. GLUCOTROL XL [Concomitant]
     Dates: start: 20010729
  14. INSULIN [Concomitant]
     Dosage: 20 UNITS TO 30 UNITS
     Dates: start: 20021008
  15. SEROQUEL [Suspect]
     Dosage: 100 MG, 200 MG DISPENSED
     Route: 048
     Dates: start: 20040524
  16. SEROQUEL [Suspect]
     Route: 048
     Dates: start: 20051202
  17. CLONAZEPAM [Concomitant]
     Dates: start: 20040903
  18. SEROQUEL [Suspect]
     Indication: BIPOLAR DISORDER
     Route: 048
     Dates: start: 20030401, end: 20070711
  19. SEROQUEL [Suspect]
     Route: 048
     Dates: start: 20030401, end: 20070711
  20. SEROQUEL [Suspect]
     Route: 048
     Dates: start: 20030401, end: 20070711
  21. METHYLDOPA [Concomitant]
     Dates: start: 20010729
  22. METFORMIN [Concomitant]
     Dates: start: 20030919

REACTIONS (8)
  - DIABETES MELLITUS INADEQUATE CONTROL [None]
  - EYE DISORDER [None]
  - OPEN ANGLE GLAUCOMA [None]
  - BLINDNESS [None]
  - DIABETIC NEUROPATHY [None]
  - DIABETES MELLITUS [None]
  - BLOOD DISORDER [None]
  - DIABETIC NEPHROPATHY [None]
